FAERS Safety Report 6884963-0 (Version None)
Quarter: 2010Q3

REPORT INFORMATION
  Report Type: 
  Country: None (occurrence: None)
  Receive Date: 20100729
  Receipt Date: 20071025
  Transmission Date: 20110219
  Serious: Yes (Life-Threatening, Other)
  Sender: FDA-Public Use
  Company Number: US-PFIZER INC-2007073806

PATIENT
  Age: 64 Year
  Sex: Female
  Weight: 72.6 kg

DRUGS (5)
  1. CELEBREX [Suspect]
  2. BEXTRA [Suspect]
  3. NORVASC [Concomitant]
  4. FLONASE [Concomitant]
  5. VIOXX [Concomitant]

REACTIONS (1)
  - CHEST PAIN [None]
